FAERS Safety Report 19632544 (Version 1)
Quarter: 2021Q3

REPORT INFORMATION
  Report Type: Spontaneous
  Country: US (occurrence: US)
  Receive Date: 20210728
  Receipt Date: 20210728
  Transmission Date: 20211014
  Serious: No
  Sender: FDA-Public Use
  Company Number: US-ROCHE-2626827

PATIENT
  Age: 49 Year
  Sex: Female

DRUGS (2)
  1. XELODA [Suspect]
     Active Substance: CAPECITABINE
     Indication: BREAST CANCER METASTATIC
     Route: 065
  2. TUCATINIB [Suspect]
     Active Substance: TUCATINIB
     Indication: BREAST CANCER METASTATIC
     Route: 048
     Dates: start: 20200522

REACTIONS (12)
  - Fatigue [Unknown]
  - Regurgitation [Unknown]
  - Feeling abnormal [Unknown]
  - Sensory disturbance [Unknown]
  - Pharyngeal erythema [Unknown]
  - Gastrooesophageal reflux disease [Unknown]
  - Product physical issue [Unknown]
  - Dysphonia [Unknown]
  - Product dispensing error [Unknown]
  - Product storage error [Unknown]
  - Neuropathy peripheral [Unknown]
  - Oral discomfort [Unknown]
